FAERS Safety Report 26071842 (Version 1)
Quarter: 2025Q4

REPORT INFORMATION
  Report Type: Spontaneous
  Country: US (occurrence: None)
  Receive Date: 20251120
  Receipt Date: 20251120
  Transmission Date: 20260118
  Serious: Yes (Other)
  Sender: FDA-CTU
  Company Number: None

PATIENT
  Age: 96 Year
  Sex: Female
  Weight: 76 kg

DRUGS (13)
  1. FERRLECIT [Suspect]
     Active Substance: SODIUM FERRIC GLUCONATE COMPLEX
     Indication: Iron deficiency anaemia
     Dosage: OTHER FREQUENCY : ONCE;?
     Route: 042
     Dates: start: 20240214, end: 20251113
  2. Basaglar 24 units SQ daily AM [Concomitant]
  3. Vitamin D3 25 mcg PO daily [Concomitant]
  4. Clonidine 0.1mcg/24 weekly transdermal patch [Concomitant]
  5. Eliquis 5 mg PO BID [Concomitant]
  6. Gabapentin 300 mg PO TID [Concomitant]
  7. Loratadine 10 mg PO daily [Concomitant]
  8. Lovastatin 20 mg PO daily [Concomitant]
  9. Pantoprazole 40 mg PO daily [Concomitant]
  10. Oseltamivir 30 mg PO daily [Concomitant]
  11. Torsemide 20 mg PO BID [Concomitant]
  12. Trazodone 50 mg PO daily [Concomitant]
  13. amlodipine 10 mg PO daily [Concomitant]

REACTIONS (8)
  - Infusion related reaction [None]
  - Chest pain [None]
  - Pain in extremity [None]
  - Chest discomfort [None]
  - Chest pain [None]
  - Back pain [None]
  - Dyspnoea [None]
  - Rales [None]

NARRATIVE: CASE EVENT DATE: 20251113
